FAERS Safety Report 22101301 (Version 1)
Quarter: 2023Q1

REPORT INFORMATION
  Report Type: Spontaneous
  Country: DE (occurrence: DE)
  Receive Date: 20230316
  Receipt Date: 20230316
  Transmission Date: 20230418
  Serious: Yes (Other)
  Sender: FDA-Public Use
  Company Number: None

PATIENT
  Sex: Female
  Weight: 74 kg

DRUGS (5)
  1. EZETIMIBE [Suspect]
     Active Substance: EZETIMIBE
     Indication: Low density lipoprotein
     Dosage: 10 MILLIGRAM, QD ( EVERY 1 DAY)
     Route: 065
     Dates: start: 201802, end: 201803
  2. ROSUVASTATIN [Suspect]
     Active Substance: ROSUVASTATIN
     Indication: Low density lipoprotein
     Dosage: 5 MILLIGRAM, QD (EVERY 1 DAY)
     Route: 065
     Dates: start: 201812, end: 201903
  3. BEMPEDOIC ACID [Suspect]
     Active Substance: BEMPEDOIC ACID
     Indication: Low density lipoprotein
     Dosage: 180 MILLIGRAM, QD ( EVERY 1 DAY)
     Route: 065
     Dates: start: 202110, end: 202110
  4. PRAVASTATIN [Suspect]
     Active Substance: PRAVASTATIN
     Indication: Low density lipoprotein
     Dosage: 10 MILLIGRAM, QD (EVERY 1 DAY)
     Route: 065
     Dates: start: 201709, end: 201710
  5. SIMVASTATIN [Suspect]
     Active Substance: SIMVASTATIN
     Indication: Low density lipoprotein
     Dosage: 10 MILLIGRAM, QD (EVERY 1 DAY)
     Route: 065
     Dates: start: 201711, end: 201711

REACTIONS (4)
  - Angina pectoris [Recovered/Resolved]
  - Arthralgia [Recovered/Resolved]
  - Muscular weakness [Recovered/Resolved]
  - Myalgia [Recovered/Resolved]
